FAERS Safety Report 23150302 (Version 2)
Quarter: 2023Q4

REPORT INFORMATION
  Report Type: Report from Study
  Country: IL (occurrence: IL)
  Receive Date: 20231106
  Receipt Date: 20231205
  Transmission Date: 20240110
  Serious: Yes (Hospitalization)
  Sender: FDA-Public Use
  Company Number: IL-ABBVIE-5483112

PATIENT
  Sex: Male

DRUGS (2)
  1. CARBIDOPA\LEVODOPA [Suspect]
     Active Substance: CARBIDOPA\LEVODOPA
     Indication: Parkinson^s disease
     Route: 050
     Dates: start: 20220117
  2. CARBIDOPA\LEVODOPA [Suspect]
     Active Substance: CARBIDOPA\LEVODOPA
     Dosage: MORNING DOSAGE 11ML,CONTINUOUS DOSAGE 4.4ML/H, EXTRA DOSAGE 2.6ML
     Route: 050

REACTIONS (5)
  - Cardiac failure [Unknown]
  - On and off phenomenon [Unknown]
  - Therapeutic product effect incomplete [Unknown]
  - Device dislocation [Recovered/Resolved]
  - Parkinson^s disease [Unknown]
